FAERS Safety Report 5764421-7 (Version None)
Quarter: 2008Q2

REPORT INFORMATION
  Report Type: 
  Country: None (occurrence: None)
  Receive Date: 20080605
  Receipt Date: 20080523
  Transmission Date: 20081010
  Serious: Yes (Hospitalization)
  Sender: FDA-Public Use
  Company Number: 2008AL005860

PATIENT
  Age: 83 Year
  Sex: Female

DRUGS (25)
  1. DIGOXIN [Suspect]
     Indication: ATRIAL FIBRILLATION
     Dosage: 0.125MG DAILY PO
     Route: 048
     Dates: start: 20070101, end: 20080506
  2. CARDIZEM [Concomitant]
  3. MIRALAX [Concomitant]
  4. COLACE [Concomitant]
  5. PREVACID [Concomitant]
  6. FERROUS SULFATE TAB [Concomitant]
  7. LASIX [Concomitant]
  8. MULTI-VITAMIN [Concomitant]
  9. PREDNISONE TAB [Concomitant]
  10. PHOSLO [Concomitant]
  11. ATARAX [Concomitant]
  12. GUAFEDRIN [Concomitant]
  13. REQUIP [Concomitant]
  14. COUMADIN [Concomitant]
  15. THEOPHYLLINE [Concomitant]
  16. SINGULAIR [Concomitant]
  17. LIPITOR [Concomitant]
  18. CALCETATE [Concomitant]
  19. TRAMADOL HCL [Concomitant]
  20. ADVAIR DISKUS 100/50 [Concomitant]
  21. SPIRIVA [Concomitant]
  22. ASTELIN [Concomitant]
  23. GLYBURIDE [Concomitant]
  24. BONIVA [Concomitant]
  25. NITROGLYCERIN [Concomitant]

REACTIONS (7)
  - ANOREXIA [None]
  - ASTHENIA [None]
  - DIARRHOEA [None]
  - NAUSEA [None]
  - PYREXIA [None]
  - URINE OUTPUT DECREASED [None]
  - VOMITING [None]
